FAERS Safety Report 5896327-7 (Version None)
Quarter: 2008Q3

REPORT INFORMATION
  Report Type: 
  Country: None (occurrence: None)
  Receive Date: 20080924
  Receipt Date: 20070827
  Transmission Date: 20090109
  Serious: Yes (Other)
  Sender: FDA-Public Use
  Company Number: US-ASTRAZENECA-2007UW20443

PATIENT
  Age: 35 Year
  Sex: Female
  Weight: 81.6 kg

DRUGS (11)
  1. SEROQUEL [Suspect]
     Indication: SCHIZOAFFECTIVE DISORDER
     Route: 048
     Dates: start: 20070501, end: 20070701
  2. SEROQUEL [Suspect]
     Indication: BIPOLAR I DISORDER
     Route: 048
     Dates: start: 20070501, end: 20070701
  3. SEROQUEL [Suspect]
     Route: 048
     Dates: start: 20070701, end: 20070801
  4. SEROQUEL [Suspect]
     Route: 048
     Dates: start: 20070701, end: 20070801
  5. SEROQUEL [Suspect]
     Route: 048
     Dates: start: 20070801
  6. SEROQUEL [Suspect]
     Route: 048
     Dates: start: 20070801
  7. GEODAN [Concomitant]
  8. TOPAMAX [Concomitant]
  9. KLONOPIN [Concomitant]
  10. LEXAPRO [Concomitant]
  11. LISINOPRIL [Concomitant]

REACTIONS (3)
  - DYSKINESIA [None]
  - URINARY INCONTINENCE [None]
  - WEIGHT INCREASED [None]
